FAERS Safety Report 6883034-7 (Version None)
Quarter: 2010Q3

REPORT INFORMATION
  Report Type: 
  Country: None (occurrence: None)
  Receive Date: 20100727
  Receipt Date: 20100712
  Transmission Date: 20110219
  Serious: Yes (Hospitalization)
  Sender: FDA-Public Use
  Company Number: 7010966

PATIENT
  Age: 44 Year
  Sex: Female
  Weight: 50 kg

DRUGS (4)
  1. REBIF [Suspect]
     Indication: RELAPSING-REMITTING MULTIPLE SCLEROSIS
     Dosage: 44 MCG, 3 IN 1 WK, SUBCUTANEOUS
     Route: 058
     Dates: start: 20071025
  2. PAMELOR (NORTRIPTYLINE) (NORTRIPTYLINE HYDROCHLORIDE) [Concomitant]
  3. LIORESAL [Concomitant]
  4. TEGRETOL [Concomitant]

REACTIONS (7)
  - HEADACHE [None]
  - NECK PAIN [None]
  - PAIN [None]
  - PAIN IN EXTREMITY [None]
  - SKIN WARM [None]
  - SPINAL DISORDER [None]
  - WEIGHT INCREASED [None]
